FAERS Safety Report 9945789 (Version 1)
Quarter: 2014Q1

REPORT INFORMATION
  Report Type: Spontaneous
  Country: US (occurrence: US)
  Receive Date: 20140303
  Receipt Date: 20140303
  Transmission Date: 20141002
  Serious: No
  Sender: FDA-Public Use
  Company Number: US-ABBVIE-13P-163-1050942-00

PATIENT
  Sex: Male
  Weight: 136.2 kg

DRUGS (2)
  1. HUMIRA [Suspect]
     Indication: PSORIASIS
  2. UNKNOWN MEDICATION [Concomitant]
     Indication: HYPERTENSION

REACTIONS (1)
  - Drug ineffective [Not Recovered/Not Resolved]
